FAERS Safety Report 7028263-7 (Version None)
Quarter: 2010Q4

REPORT INFORMATION
  Report Type: 
  Country: None (occurrence: None)
  Receive Date: 20101005
  Receipt Date: 20100923
  Transmission Date: 20110411
  Serious: Yes (Other)
  Sender: FDA-Public Use
  Company Number: IE-PFIZER INC-2010105756

PATIENT
  Age: 59 Year
  Sex: Female
  Weight: 66.7 kg

DRUGS (4)
  1. LUSTRAL [Suspect]
     Indication: DEPRESSION
     Dosage: 50 MG, 1X/DAY
     Route: 048
     Dates: start: 20100101
  2. LUSTRAL [Suspect]
     Dosage: 100 MG, 1X/DAY
     Dates: start: 20100208, end: 20100222
  3. ELTROXIN [Concomitant]
     Indication: HYPOTHYROIDISM
     Dosage: 150 UG, 1X/DAY
     Route: 048
  4. MAXOLON [Concomitant]
     Indication: ABDOMINAL DISCOMFORT
     Dosage: 1 DF, DAILY AS NEEDED

REACTIONS (2)
  - HALLUCINATION, VISUAL [None]
  - THINKING ABNORMAL [None]
